FAERS Safety Report 25935732 (Version 1)
Quarter: 2025Q4

REPORT INFORMATION
  Report Type: Spontaneous
  Country: EU (occurrence: EU)
  Receive Date: 20251017
  Receipt Date: 20251017
  Transmission Date: 20260117
  Serious: Yes (Hospitalization)
  Sender: TEVA
  Company Number: None

PATIENT
  Age: 79 Year
  Sex: Male

DRUGS (2)
  1. LENALIDOMIDE [Suspect]
     Active Substance: LENALIDOMIDE
     Indication: Non-Hodgkin^s lymphoma
     Dosage: HAS RECEIVED 28 DAYS, LENALIDOMIDE DAYS 1-21: LENALIDOMIDE (8089A)
     Route: 048
     Dates: start: 20250701, end: 20250915
  2. RITUXIMAB [Suspect]
     Active Substance: RITUXIMAB
     Indication: Non-Hodgkin^s lymphoma
     Dosage: HAS RECEIVED 3 CYCLES: RITUXIMAB (2814A)
     Route: 042
     Dates: start: 20250701, end: 20250826

REACTIONS (2)
  - Febrile neutropenia [Recovering/Resolving]
  - Pneumonia parainfluenzae viral [Recovering/Resolving]

NARRATIVE: CASE EVENT DATE: 20250921
